FAERS Safety Report 9199029 (Version 1)
Quarter: 2013Q1

REPORT INFORMATION
  Report Type: Spontaneous
  Country: UG (occurrence: None)
  Receive Date: 20130326
  Receipt Date: 20130326
  Transmission Date: 20140127
  Serious: No
  Sender: FDA-Public Use
  Company Number: B0876473A

PATIENT
  Sex: 0

DRUGS (2)
  1. ABACAVIR SULPHATE [Suspect]
     Indication: HIV INFECTION
     Dosage: PER DAY
  2. LAMIVUDINE [Suspect]
     Indication: HIV INFECTION
     Dosage: PER DAY

REACTIONS (1)
  - Hepatitis [None]
